FAERS Safety Report 6220831-5 (Version None)
Quarter: 2009Q2

REPORT INFORMATION
  Report Type: 
  Country: None (occurrence: None)
  Receive Date: 20090605
  Receipt Date: 20090529
  Transmission Date: 20091009
  Serious: Yes (Death)
  Sender: FDA-Public Use
  Company Number: JP-WYE-H09581809

PATIENT
  Age: 59 Year
  Sex: Male

DRUGS (1)
  1. ZOSYN [Suspect]
     Indication: PNEUMONIA
     Dosage: 4.5 G 4X PER 1 DAY INTRAVENOUS DRIP
     Route: 041
     Dates: start: 20090513, end: 20090516

REACTIONS (1)
  - RENAL FAILURE [None]
